FAERS Safety Report 5141006-7 (Version None)
Quarter: 2006Q4

REPORT INFORMATION
  Report Type: 
  Country: None (occurrence: None)
  Receive Date: 20061026
  Receipt Date: 20061013
  Transmission Date: 20070319
  Serious: Yes (Death)
  Sender: FDA-Public Use
  Company Number: 2006125453

PATIENT
  Age: 45 Year
  Sex: Male
  Weight: 70 kg

DRUGS (5)
  1. SUTENT [Suspect]
     Indication: SYNOVIAL SARCOMA METASTATIC
     Dosage: 37.5 MG (37.5 MG, 1 IN 1 D), ORAL
     Route: 048
     Dates: start: 20060914, end: 20060928
  2. CIPROFLOXACIN [Suspect]
     Indication: PNEUMONIA BACTERIAL
     Dosage: 1000 MG (500 MG, 2 IN 1 D), ORAL
     Route: 048
     Dates: start: 20060927, end: 20060928
  3. DALFALGAN (PARACETAMOL) [Suspect]
     Dosage: 4 GRAM (1 GRAM, 4 IN 1 D), ORAL
     Route: 048
     Dates: start: 20060928, end: 20060929
  4. AUGMENTIN '125' [Suspect]
     Indication: PNEUMONIA BACTERIAL
     Dosage: 3.6 GRAM (1.2 GRAM, 3 IN 1 D), INTRAVENOUS
     Route: 042
     Dates: start: 20060928
  5. ZOLPIDEM TARTRATE [Suspect]
     Dosage: 10 MG (10 MG, 1 IN 1 D), ORAL
     Route: 048
     Dates: start: 20060927, end: 20060929

REACTIONS (8)
  - ACUTE HEPATIC FAILURE [None]
  - DISEASE PROGRESSION [None]
  - HAEMODIALYSIS [None]
  - LACTIC ACIDOSIS [None]
  - METABOLIC ACIDOSIS [None]
  - PNEUMONIA BACTERIAL [None]
  - SUBACUTE HEPATIC FAILURE [None]
  - THERAPY NON-RESPONDER [None]
